FAERS Safety Report 5694069-4 (Version None)
Quarter: 2008Q2

REPORT INFORMATION
  Report Type: 
  Country: None (occurrence: None)
  Receive Date: 20080401
  Receipt Date: 20080320
  Transmission Date: 20081010
  Serious: Yes (Hospitalization, Other)
  Sender: FDA-Public Use
  Company Number: WAES 0803FIN00004

PATIENT
  Age: 63 Year
  Sex: Female

DRUGS (2)
  1. CAP VORINOSTAT [Suspect]
     Indication: MYCOSIS FUNGOIDES
     Dosage: 400 MG/DAILY PO : 300 MG 5XWM PO
     Route: 048
     Dates: start: 20080303, end: 20080313
  2. CAP VORINOSTAT [Suspect]
     Indication: MYCOSIS FUNGOIDES
     Dosage: 400 MG/DAILY PO : 300 MG 5XWM PO
     Route: 048
     Dates: start: 20080317

REACTIONS (2)
  - CARDIAC DISORDER [None]
  - DYSPNOEA [None]
